FAERS Safety Report 8848828 (Version 4)
Quarter: 2013Q3

REPORT INFORMATION
  Report Type: Spontaneous
  Country: US (occurrence: US)
  Receive Date: 20121018
  Receipt Date: 20130927
  Transmission Date: 20140515
  Serious: Yes (Other)
  Sender: FDA-Public Use
  Company Number: US-BAYER-2012-107844

PATIENT
  Age: 37 Year
  Sex: Female
  Weight: 74.83 kg

DRUGS (10)
  1. YASMIN [Suspect]
     Dosage: UNK
     Dates: start: 20100209, end: 20101222
  2. VENTOLIN HFA [Concomitant]
     Dosage: 90 ?G, UNK
     Dates: start: 20100928
  3. ADVAIR [Concomitant]
     Dosage: 230-21MCG
     Dates: start: 20100928
  4. BUPROPION SR [Concomitant]
     Dosage: 150 MG, UNK
     Dates: start: 20101030
  5. SINGULAIR [Concomitant]
     Dosage: 10 MG, UNK
     Dates: start: 20101117
  6. AZITHROMYCIN [Concomitant]
     Dosage: 250 MG, UNK
     Dates: start: 20101122
  7. FLUTICASONE PROPIONATE [Concomitant]
     Dosage: 50 ?G, UNK
     Dates: start: 20101204
  8. PSEUDOEPHEDRINE [Concomitant]
     Route: 048
  9. PSEUDOEPHEDRINE [Concomitant]
  10. ZYRTEC [CETIRIZINE HYDROCHLORIDE] [Concomitant]

REACTIONS (11)
  - Deep vein thrombosis [None]
  - Emotional distress [None]
  - Injury [None]
  - Pain [None]
  - General physical health deterioration [None]
  - Anxiety [None]
  - Pain [None]
  - Headache [None]
  - Muscle strain [None]
  - VIIth nerve paralysis [None]
  - Tongue paralysis [None]
